FAERS Safety Report 9300167 (Version 1)
Quarter: 2012Q4

REPORT INFORMATION
  Report Type: Spontaneous
  Country: US (occurrence: None)
  Receive Date: 20121113
  Receipt Date: 20121113
  Transmission Date: 20130627
  Serious: No
  Sender: FDA-Public Use
  Company Number: 2012-00159

PATIENT
  Age: 70 Year
  Sex: Male
  Weight: 86.18 kg

DRUGS (6)
  1. ZICAM [Suspect]
     Indication: COLD
     Dosage: ONE CHEWABLE ORALLY
     Route: 048
     Dates: start: 20120924
  2. NADOLOL [Concomitant]
  3. FINASTERIDE [Concomitant]
  4. PRAVASTATIN [Concomitant]
  5. LUMIGAN [Concomitant]
  6. MULTI-VITAMIN [Concomitant]

REACTIONS (2)
  - Dysgeusia [None]
  - Ageusia [None]
